FAERS Safety Report 23298291 (Version 1)
Quarter: 2023Q4

REPORT INFORMATION
  Report Type: Report from Study
  Country: CA (occurrence: CA)
  Receive Date: 20231214
  Receipt Date: 20231214
  Transmission Date: 20240109
  Serious: Yes (Death)
  Sender: FDA-Public Use
  Company Number: CA-PFIZER INC-PV202300202556

PATIENT
  Age: 44 Year

DRUGS (2)
  1. ENCORAFENIB [Suspect]
     Active Substance: ENCORAFENIB
  2. BINIMETINIB [Suspect]
     Active Substance: BINIMETINIB

REACTIONS (1)
  - Death [Fatal]
